FAERS Safety Report 7296454-6 (Version None)
Quarter: 2011Q1

REPORT INFORMATION
  Report Type: 
  Country: None (occurrence: None)
  Receive Date: 20110216
  Receipt Date: 20110202
  Transmission Date: 20110831
  Serious: Yes (Hospitalization, Other)
  Sender: FDA-Public Use
  Company Number: US-ASTRAZENECA-2010SE59333

PATIENT
  Age: 43 Year
  Sex: Male

DRUGS (4)
  1. PROZAC [Concomitant]
  2. SEROQUEL XR [Suspect]
     Indication: BIPOLAR DISORDER
     Route: 048
  3. AMBIEN [Concomitant]
  4. SEROQUEL XR [Suspect]
     Route: 048
     Dates: start: 20101115, end: 20101202

REACTIONS (7)
  - DISORIENTATION [None]
  - RENAL FAILURE ACUTE [None]
  - BLOOD CREATINE PHOSPHOKINASE INCREASED [None]
  - TACHYCARDIA [None]
  - CONFUSIONAL STATE [None]
  - BODY TEMPERATURE DECREASED [None]
  - NEUROLEPTIC MALIGNANT SYNDROME [None]
